FAERS Safety Report 21873753 (Version 1)
Quarter: 2023Q1

REPORT INFORMATION
  Report Type: Spontaneous
  Country: US (occurrence: None)
  Receive Date: 20230116
  Receipt Date: 20230116
  Transmission Date: 20230417
  Serious: Yes (Hospitalization)
  Sender: FDA-Public Use
  Company Number: None

PATIENT
  Age: 55 Year
  Sex: Male

DRUGS (10)
  1. MEKINIST [Suspect]
     Active Substance: TRAMETINIB DIMETHYL SULFOXIDE
     Indication: Malignant melanoma
     Dosage: FREQUENCY : DAILY;?
     Route: 048
     Dates: start: 20220729, end: 20230112
  2. TAFINLAR [Suspect]
     Active Substance: DABRAFENIB MESYLATE
     Indication: Malignant melanoma
     Dosage: FREQUENCY : TWICE A DAY;?
     Route: 048
     Dates: start: 20220729, end: 20230112
  3. ONDANSETRON [Concomitant]
     Active Substance: ONDANSETRON
  4. OXYCODONE [Concomitant]
     Active Substance: OXYCODONE
  5. PROCHLORPERAZINE [Concomitant]
     Active Substance: PROCHLORPERAZINE
  6. ACETAMINOPHEN [Concomitant]
     Active Substance: ACETAMINOPHEN
  7. PYRIDOXINE [Concomitant]
     Active Substance: PYRIDOXINE
  8. FISH OIL [Concomitant]
     Active Substance: FISH OIL
  9. CARVEDILOL [Concomitant]
     Active Substance: CARVEDILOL
  10. VITAMINS [Concomitant]
     Active Substance: VITAMINS

REACTIONS (7)
  - Fatigue [None]
  - Pyrexia [None]
  - Tremor [None]
  - Chills [None]
  - Abdominal pain [None]
  - Vomiting [None]
  - Therapy interrupted [None]

NARRATIVE: CASE EVENT DATE: 20220826
